FAERS Safety Report 16798211 (Version 1)
Quarter: 2019Q3

REPORT INFORMATION
  Report Type: Spontaneous
  Country: PT (occurrence: PT)
  Receive Date: 20190912
  Receipt Date: 20190912
  Transmission Date: 20191005
  Serious: Yes (Other)
  Sender: FDA-Public Use
  Company Number: PT-IPSEN BIOPHARMACEUTICALS, INC.-2019-16589

PATIENT
  Age: 72 Year
  Sex: Male

DRUGS (9)
  1. BACLOFEN. [Concomitant]
     Active Substance: BACLOFEN
  2. GABAPENTIN. [Concomitant]
     Active Substance: GABAPENTIN
  3. BOTULINUM TOXIN TYPE A NOS [Suspect]
     Active Substance: BOTULINUM TOXIN TYPE A
     Indication: TRIGEMINAL NEURALGIA
     Dosage: 45 UNITS (LEFT TRIGEMINAL REGIONS)
     Route: 065
  4. PREGABALIN. [Concomitant]
     Active Substance: PREGABALIN
  5. TOPIRAMATE. [Concomitant]
     Active Substance: TOPIRAMATE
  6. LAMOTRIGINE. [Concomitant]
     Active Substance: LAMOTRIGINE
  7. VERAPAMIL [Concomitant]
     Active Substance: VERAPAMIL HYDROCHLORIDE
  8. BOTULINUM TOXIN TYPE A NOS [Suspect]
     Active Substance: BOTULINUM TOXIN TYPE A
     Indication: OFF LABEL USE
  9. CARBAMAZEPINE. [Concomitant]
     Active Substance: CARBAMAZEPINE

REACTIONS (3)
  - Drug effective for unapproved indication [Unknown]
  - Off label use [Unknown]
  - Facial paralysis [Recovered/Resolved]
